FAERS Safety Report 12328788 (Version 1)
Quarter: 2016Q2

REPORT INFORMATION
  Report Type: Spontaneous
  Country: US (occurrence: US)
  Receive Date: 20160503
  Receipt Date: 20160503
  Transmission Date: 20160815
  Serious: No
  Sender: FDA-Public Use
  Company Number: US-BEH-2015050791

PATIENT
  Age: 57 Year
  Sex: Male
  Weight: 105 kg

DRUGS (20)
  1. HIZENTRA [Suspect]
     Active Substance: HUMAN IMMUNOGLOBULIN G
     Route: 058
  2. EPIPEN [Concomitant]
     Active Substance: EPINEPHRINE
  3. OXYCODONE [Concomitant]
     Active Substance: OXYCODONE
  4. LMX [Concomitant]
     Active Substance: LIDOCAINE
  5. PHENERGAN [Concomitant]
     Active Substance: PROMETHAZINE HYDROCHLORIDE
  6. MELOXICAM. [Concomitant]
     Active Substance: MELOXICAM
  7. NASONEX [Concomitant]
     Active Substance: MOMETASONE FUROATE
  8. DULERA [Concomitant]
     Active Substance: FORMOTEROL FUMARATE DIHYDRATE\MOMETASONE FUROATE
     Route: 055
  9. ALLEGRA [Concomitant]
     Active Substance: FEXOFENADINE HYDROCHLORIDE
  10. ACIPHEX EC [Concomitant]
  11. ACETAMINOPHEN. [Concomitant]
     Active Substance: ACETAMINOPHEN
  12. NEURONTIN [Concomitant]
     Active Substance: GABAPENTIN
  13. IBUPROFEN. [Concomitant]
     Active Substance: IBUPROFEN
  14. ZANTAC [Concomitant]
     Active Substance: RANITIDINE HYDROCHLORIDE
  15. ANDROGEL [Concomitant]
     Active Substance: TESTOSTERONE
  16. HIZENTRA [Suspect]
     Active Substance: HUMAN IMMUNOGLOBULIN G
     Indication: IMMUNODEFICIENCY COMMON VARIABLE
     Route: 058
  17. DIPHENHYDRAMINE. [Concomitant]
     Active Substance: DIPHENHYDRAMINE
  18. BUTALB-ACETAMIN-CAFF [Concomitant]
  19. LIDOCAINE/PRILOCAINE [Concomitant]
  20. SOMA [Concomitant]
     Active Substance: CARISOPRODOL

REACTIONS (1)
  - Hypertension [Unknown]

NARRATIVE: CASE EVENT DATE: 20150413
